FAERS Safety Report 7323131-5 (Version None)
Quarter: 2011Q1

REPORT INFORMATION
  Report Type: 
  Country: None (occurrence: None)
  Receive Date: 20110301
  Receipt Date: 20110223
  Transmission Date: 20110831
  Serious: Yes (Death, Other)
  Sender: FDA-Public Use
  Company Number: JP-JNJFOC-20110208048

PATIENT
  Age: 91 Year
  Sex: Male

DRUGS (6)
  1. ARICEPT [Concomitant]
     Route: 048
  2. UNKNOWN MEDICATION [Suspect]
     Indication: PRODUCT USED FOR UNKNOWN INDICATION
     Dosage: 1 ML RISPERIDONE ORAL SOLUTION WITH SODA POP 500 ML
     Route: 048
  3. RISPERDAL [Suspect]
     Dosage: 1 MG AT NOON AND 1 MG AT NIGHT
     Route: 048
  4. UNKNOWN MEDICATION [Concomitant]
     Indication: BLOOD PRESSURE
     Route: 065
  5. DEPAS [Concomitant]
     Route: 048
  6. RISPERDAL [Suspect]
     Indication: PRODUCT USED FOR UNKNOWN INDICATION
     Dosage: 1 ML SOLUTION MIXED WITH SODA POP 500 ML
     Route: 048

REACTIONS (7)
  - HYPERSOMNIA [None]
  - SUDDEN DEATH [None]
  - WRONG TECHNIQUE IN DRUG USAGE PROCESS [None]
  - GENERAL PHYSICAL CONDITION ABNORMAL [None]
  - DEATH [None]
  - PNEUMONIA [None]
  - ABNORMAL FAECES [None]
